FAERS Safety Report 13292109 (Version 2)
Quarter: 2017Q1

REPORT INFORMATION
  Report Type: Spontaneous
  Country: JP (occurrence: JP)
  Receive Date: 20170303
  Receipt Date: 20170313
  Transmission Date: 20170428
  Serious: Yes (Death, Hospitalization)
  Sender: FDA-Public Use
  Company Number: JP-UNITED THERAPEUTICS-UNT-2017-002719

PATIENT
  Age: 31 Year
  Sex: Male
  Weight: 45 kg

DRUGS (2)
  1. REMODULIN [Suspect]
     Active Substance: TREPROSTINIL
     Dosage: UNK
     Route: 041
     Dates: start: 20161110, end: 20161121
  2. REMODULIN [Suspect]
     Active Substance: TREPROSTINIL
     Indication: PULMONARY ARTERIAL HYPERTENSION
     Dosage: UNK
     Route: 058
     Dates: start: 20161026, end: 20161109

REACTIONS (4)
  - Right ventricular failure [Fatal]
  - Pulmonary arterial hypertension [Fatal]
  - Sepsis [Fatal]
  - Infusion site pain [Unknown]

NARRATIVE: CASE EVENT DATE: 2016
